FAERS Safety Report 4992945-9 (Version None)
Quarter: 2006Q2

REPORT INFORMATION
  Report Type: 
  Country: None (occurrence: None)
  Receive Date: 20060504
  Receipt Date: 20050509
  Transmission Date: 20061013
  Serious: Yes (Hospitalization, Other)
  Sender: FDA-Public Use
  Company Number: US-MERCK-0505USA01101

PATIENT
  Age: 63 Year
  Sex: Female
  Weight: 80 kg

DRUGS (3)
  1. VIOXX [Suspect]
     Indication: BURSITIS
     Route: 048
     Dates: start: 20000316, end: 20040901
  2. VIOXX [Suspect]
     Indication: OSTEOARTHRITIS
     Route: 048
     Dates: start: 20000316, end: 20040901
  3. TYLENOL (CAPLET) [Concomitant]
     Route: 065

REACTIONS (20)
  - ADAMS-STOKES SYNDROME [None]
  - ASTHENIA [None]
  - ATRIAL FIBRILLATION [None]
  - BLADDER DISORDER [None]
  - CHOLECYSTITIS [None]
  - CYSTOCELE [None]
  - DEPRESSION [None]
  - GASTRITIS [None]
  - GASTROOESOPHAGEAL REFLUX DISEASE [None]
  - HYPERLIPIDAEMIA [None]
  - HYPERTENSION [None]
  - MOOD SWINGS [None]
  - PANIC ATTACK [None]
  - PARONYCHIA [None]
  - PEPTIC ULCER [None]
  - SICK SINUS SYNDROME [None]
  - SUPRAVENTRICULAR TACHYCARDIA [None]
  - UMBILICAL HERNIA [None]
  - URGE INCONTINENCE [None]
  - VAGINAL PROLAPSE [None]
